FAERS Safety Report 19785695 (Version 1)
Quarter: 2021Q3

REPORT INFORMATION
  Report Type: Other
  Country: CA (occurrence: CA)
  Receive Date: 20210903
  Receipt Date: 20210903
  Transmission Date: 20211014
  Serious: Yes (Other)
  Sender: FDA-Public Use
  Company Number: CA-ACCORD-236751

PATIENT
  Age: 62 Year
  Sex: Male
  Weight: 78 kg

DRUGS (5)
  1. METHOXSALEN. [Concomitant]
     Active Substance: METHOXSALEN
     Indication: PRODUCT USED FOR UNKNOWN INDICATION
  2. INTERFERON ALFA?2B [Suspect]
     Active Substance: INTERFERON ALFA-2B
     Indication: CUTANEOUS T-CELL LYMPHOMA
     Route: 058
  3. CHLORMETHINE [Suspect]
     Active Substance: MECHLORETHAMINE
     Indication: CUTANEOUS T-CELL LYMPHOMA
     Route: 061
  4. ALITRETINOIN [Concomitant]
     Active Substance: ALITRETINOIN
     Indication: CUTANEOUS T-CELL LYMPHOMA
     Dosage: 1 EVERY 1 DAYS
     Route: 048
  5. METHOTREXATE. [Suspect]
     Active Substance: METHOTREXATE
     Indication: CUTANEOUS T-CELL LYMPHOMA
     Dosage: 1 EVERY 1 WEEKS
     Route: 048

REACTIONS (1)
  - Pancreatic carcinoma [Unknown]
